FAERS Safety Report 9447899 (Version 1)
Quarter: 2013Q3

REPORT INFORMATION
  Report Type: Spontaneous
  Country: US (occurrence: None)
  Receive Date: 20130807
  Receipt Date: 20130807
  Transmission Date: 20140515
  Serious: Yes (Life-Threatening, Hospitalization, Disabling)
  Sender: FDA-Public Use
  Company Number: None

PATIENT
  Age: 59 Year
  Sex: Male
  Weight: 70.31 kg

DRUGS (1)
  1. ARAVA [Suspect]
     Indication: RHEUMATOID ARTHRITIS
     Dosage: 1 PILL ONCE DAILY
     Dates: start: 20130207, end: 20130601

REACTIONS (15)
  - Weight decreased [None]
  - Decreased appetite [None]
  - Asthenia [None]
  - Abasia [None]
  - Dysstasia [None]
  - Haemoglobin decreased [None]
  - Red blood cell count decreased [None]
  - Lymphadenopathy [None]
  - Chromaturia [None]
  - Liver function test abnormal [None]
  - Urinary incontinence [None]
  - Faecal incontinence [None]
  - Blister [None]
  - Lip blister [None]
  - Oral mucosal blistering [None]
